FAERS Safety Report 5348244-9 (Version None)
Quarter: 2007Q2

REPORT INFORMATION
  Report Type: 
  Country: None (occurrence: None)
  Receive Date: 20070606
  Receipt Date: 20070529
  Transmission Date: 20071010
  Serious: Yes (Hospitalization)
  Sender: FDA-Public Use
  Company Number: US-GENENTECH-242119

PATIENT
  Sex: Female

DRUGS (9)
  1. BEVACIZUMAB [Suspect]
     Indication: BREAST CANCER
     Dosage: 690 MG, UNK
     Dates: start: 20070105
  2. DOXORUBICIN HCL [Suspect]
     Indication: BREAST CANCER
     Dosage: 110 MG, UNK
     Dates: start: 20070105
  3. CYTOXAN [Suspect]
     Indication: BREAST CANCER
     Dosage: 110 MG, UNK
     Dates: start: 20070105
  4. NEULASTA [Suspect]
     Indication: BREAST CANCER
     Dosage: 6 MG, UNK
     Dates: start: 20070106
  5. UBIDECARENONE [Concomitant]
     Indication: DRUG USE FOR UNKNOWN INDICATION
     Dosage: 30 MG, UNK
     Route: 048
     Dates: start: 20060616
  6. GLUCOSAMINE [Concomitant]
     Indication: DRUG USE FOR UNKNOWN INDICATION
     Dosage: 1500 MG, UNK
     Route: 048
     Dates: start: 20060616
  7. VITAMIN CAP [Concomitant]
     Indication: DRUG USE FOR UNKNOWN INDICATION
     Dosage: 1 TABLET, UNK
     Route: 048
     Dates: start: 20060616
  8. MORPHINE SULFATE [Concomitant]
     Indication: DRUG USE FOR UNKNOWN INDICATION
     Dosage: 1 TABLET, UNK
     Route: 048
     Dates: start: 20060616
  9. CHONDROITIN SULFATE [Concomitant]
     Indication: DRUG USE FOR UNKNOWN INDICATION
     Dosage: 1200 MG, UNK
     Dates: start: 20060616

REACTIONS (1)
  - APPENDICITIS [None]
